FAERS Safety Report 15068071 (Version 2)
Quarter: 2018Q3

REPORT INFORMATION
  Report Type: Spontaneous
  Country: GR (occurrence: GR)
  Receive Date: 20180626
  Receipt Date: 20180702
  Transmission Date: 20181010
  Serious: Yes (Death, Other)
  Sender: FDA-Public Use
  Company Number: GR-PFM-2018-07108

PATIENT

DRUGS (17)
  1. PROPRANOLOL [Suspect]
     Active Substance: PROPRANOLOL HYDROCHLORIDE
     Indication: OVERDOSE
     Dosage: UNK
     Route: 065
  2. QUETIAPINE FUMARATE. [Interacting]
     Active Substance: QUETIAPINE FUMARATE
     Indication: DEPRESSION
  3. PERINDOPRIL [Interacting]
     Active Substance: PERINDOPRIL
     Indication: OVERDOSE
     Dosage: UNK
     Route: 065
  4. CITALOPRAM [Interacting]
     Active Substance: CITALOPRAM HYDROBROMIDE
     Indication: DEPRESSION
  5. SEROPRAM (CITALOPRAM HYDROBROMIDE) [Interacting]
     Active Substance: CITALOPRAM HYDROBROMIDE
     Indication: DEPRESSION
  6. FLUOXETINE HYDROCHLORIDE. [Interacting]
     Active Substance: FLUOXETINE HYDROCHLORIDE
     Indication: OVERDOSE
     Dosage: UNK
     Route: 065
  7. MOCLOBEMIDE [Interacting]
     Active Substance: MOCLOBEMIDE
     Indication: OVERDOSE
  8. QUETIAPINE FUMARATE. [Interacting]
     Active Substance: QUETIAPINE FUMARATE
     Indication: OVERDOSE
     Dosage: UNK
     Route: 048
  9. FLUOXETINE HYDROCHLORIDE. [Interacting]
     Active Substance: FLUOXETINE HYDROCHLORIDE
     Indication: DEPRESSION
  10. VALPROIC ACID. [Interacting]
     Active Substance: VALPROIC ACID
     Indication: DEPRESSION
  11. CITALOPRAM [Interacting]
     Active Substance: CITALOPRAM HYDROBROMIDE
     Indication: OVERDOSE
     Dosage: UNK
     Route: 065
  12. SEROPRAM (CITALOPRAM HYDROBROMIDE) [Interacting]
     Active Substance: CITALOPRAM HYDROBROMIDE
     Indication: OVERDOSE
     Dosage: UNK
     Route: 065
  13. MOCLOBEMIDE [Interacting]
     Active Substance: MOCLOBEMIDE
     Indication: DEPRESSION
     Dosage: UNK
     Route: 065
  14. FLURBIPROFEN. [Interacting]
     Active Substance: FLURBIPROFEN
     Indication: OVERDOSE
     Dosage: UNK
     Route: 065
  15. VALPROIC ACID. [Interacting]
     Active Substance: VALPROIC ACID
     Indication: OVERDOSE
     Dosage: UNK
     Route: 048
  16. ALPRAZOLAM. [Interacting]
     Active Substance: ALPRAZOLAM
     Indication: DEPRESSION
     Dosage: UNK
     Route: 048
  17. DESLORATADINE. [Interacting]
     Active Substance: DESLORATADINE
     Indication: OVERDOSE
     Dosage: UNK
     Route: 065

REACTIONS (11)
  - Drug administered to patient of inappropriate age [Unknown]
  - Sudden death [Fatal]
  - Electrocardiogram QT prolonged [Fatal]
  - Intentional overdose [Fatal]
  - Toxicity to various agents [Fatal]
  - Arrhythmia [Fatal]
  - Off label use [Unknown]
  - Drug interaction [Fatal]
  - Ischaemic cerebral infarction [Fatal]
  - Hypertrophic cardiomyopathy [Fatal]
  - Contraindicated product administered [Fatal]
